FAERS Safety Report 19265262 (Version 2)
Quarter: 2021Q2

REPORT INFORMATION
  Report Type: Spontaneous
  Country: US (occurrence: US)
  Receive Date: 20210517
  Receipt Date: 20210528
  Transmission Date: 20210717
  Serious: Yes (Death, Hospitalization, Other)
  Sender: FDA-Public Use
  Company Number: US-B.I. PHARMACEUTICALS,INC./RIDGEFIELD-2021-BI-103653

PATIENT
  Age: 74 Year
  Sex: Male

DRUGS (1)
  1. PRADAXA [Suspect]
     Active Substance: DABIGATRAN ETEXILATE MESYLATE
     Indication: ATRIAL FIBRILLATION
     Dosage: 150 MG TWICE A DAY
     Route: 065
     Dates: start: 2011, end: 2021

REACTIONS (12)
  - Cardiac disorder [Unknown]
  - Contusion [Unknown]
  - Blood pressure decreased [Unknown]
  - Pneumonia [Unknown]
  - Fall [Unknown]
  - Fracture [Unknown]
  - Pneumothorax [Unknown]
  - Internal haemorrhage [Unknown]
  - Cardiac failure congestive [Fatal]
  - Multiple fractures [Unknown]
  - Renal failure [Unknown]
  - Fall [Recovered/Resolved]

NARRATIVE: CASE EVENT DATE: 2021
